FAERS Safety Report 6833990-8 (Version None)
Quarter: 2010Q3

REPORT INFORMATION
  Report Type: 
  Country: None (occurrence: None)
  Receive Date: 20100712
  Receipt Date: 20070409
  Transmission Date: 20110219
  Serious: No
  Sender: FDA-Public Use
  Company Number: US-PFIZER INC-2007028887

PATIENT
  Sex: Male
  Weight: 113.4 kg

DRUGS (1)
  1. CHANTIX [Suspect]
     Indication: SMOKING CESSATION THERAPY
     Dates: start: 20070331

REACTIONS (3)
  - DYSPEPSIA [None]
  - FATIGUE [None]
  - HYPERPHAGIA [None]
